FAERS Safety Report 21802432 (Version 1)
Quarter: 2022Q4

REPORT INFORMATION
  Report Type: Spontaneous
  Country: JP (occurrence: JP)
  Receive Date: 20221231
  Receipt Date: 20221231
  Transmission Date: 20230112
  Serious: Yes (Hospitalization)
  Sender: FDA-Public Use
  Company Number: None

PATIENT
  Sex: Male

DRUGS (5)
  1. FUROSEMIDE [Suspect]
     Active Substance: FUROSEMIDE
     Indication: Cardiac failure congestive
     Route: 065
  2. FUROSEMIDE [Suspect]
     Active Substance: FUROSEMIDE
     Indication: Chylothorax
  3. ALPROSTADIL ALFADEX [Suspect]
     Active Substance: ALPROSTADIL ALFADEX
     Indication: Product used for unknown indication
     Dosage: 50-75 NG/KG/MIN
     Route: 065
  4. ALPROSTADIL ALFADEX [Suspect]
     Active Substance: ALPROSTADIL ALFADEX
     Dosage: 15 NG/KG/MIN
     Route: 065
  5. SODIUM [Concomitant]
     Active Substance: SODIUM
     Indication: Hyponatraemia
     Route: 065

REACTIONS (2)
  - Brain natriuretic peptide increased [Unknown]
  - Product use in unapproved indication [Unknown]
